FAERS Safety Report 9714583 (Version 3)
Quarter: 2013Q4

REPORT INFORMATION
  Report Type: Spontaneous
  Country: GB (occurrence: None)
  Receive Date: 20131125
  Receipt Date: 20131204
  Transmission Date: 20140711
  Serious: Yes (Hospitalization)
  Sender: FDA-Public Use
  Company Number: AG-2013-015952

PATIENT
  Age: 79 Year
  Sex: Male
  Weight: 86.2 kg

DRUGS (9)
  1. CHLORAMBUCIL [Suspect]
     Indication: CHRONIC LYMPHOCYTIC LEUKAEMIA
     Route: 048
     Dates: start: 20130606
  2. OFATUMUMAB [Suspect]
     Indication: CHRONIC LYMPHOCYTIC LEUKAEMIA
     Route: 042
     Dates: start: 20130606
  3. ALLOPURINOL [Concomitant]
  4. PARACETAMOL [Concomitant]
  5. CHLORPHENIRAMINE [Concomitant]
  6. PREDNISOLONE [Concomitant]
  7. METOCLOPRAMIDE [Concomitant]
  8. ACICLOVIR [Concomitant]
  9. G-CSF (COLONY STIMULATING FACTORS) [Concomitant]

REACTIONS (7)
  - Lower respiratory tract infection [None]
  - Gout [None]
  - Arthralgia [None]
  - Dyspnoea [None]
  - Localised oedema [None]
  - Cough [None]
  - Lung infection [None]
